FAERS Safety Report 5622430-2 (Version None)
Quarter: 2008Q1

REPORT INFORMATION
  Report Type: 
  Country: None (occurrence: None)
  Receive Date: 20080114
  Receipt Date: 20070820
  Transmission Date: 20080703
  Serious: Yes (Hospitalization)
  Sender: FDA-Public Use
  Company Number: A03200705215

PATIENT
  Age: 49 Year
  Sex: Male

DRUGS (4)
  1. PLAVIX [Suspect]
     Indication: STENT PLACEMENT
     Dosage: 75 MG QD - ORAL
     Route: 048
     Dates: start: 20040101
  2. ASPIRIN [Suspect]
     Dosage: 325 MG QD - ORAL
     Route: 048
     Dates: start: 20040101, end: 20070101
  3. TARKA [Concomitant]
  4. SERTRALINE HYDROCHLORIDE [Concomitant]

REACTIONS (4)
  - ABDOMINAL PAIN UPPER [None]
  - DYSPNOEA [None]
  - GASTRIC ULCER [None]
  - MIGRAINE [None]
